FAERS Safety Report 23953089 (Version 1)
Quarter: 2024Q2

REPORT INFORMATION
  Report Type: Spontaneous
  Country: FR (occurrence: FR)
  Receive Date: 20240608
  Receipt Date: 20240608
  Transmission Date: 20240715
  Serious: Yes (Life-Threatening, Hospitalization, Other)
  Sender: FDA-Public Use
  Company Number: FR-CELLTRION INC.-2024FR013273

PATIENT

DRUGS (6)
  1. INFLIXIMAB [Suspect]
     Active Substance: INFLIXIMAB
     Indication: Crohn^s disease
     Dosage: 700 MG, EVERY 1 MONTH
     Route: 042
     Dates: start: 20211126, end: 20220519
  2. METHOTREXATE [Suspect]
     Active Substance: METHOTREXATE
     Indication: Crohn^s disease
     Dosage: 15 MG EVERY 1 WEEK
     Route: 048
     Dates: start: 20211126, end: 202208
  3. METEOSPASMYL (ALVERINE CITRATE\DIMETHICONE) [Suspect]
     Active Substance: ALVERINE CITRATE\DIMETHICONE
     Indication: Abdominal pain
     Dosage: 1 DF EVERY 1 DAY
     Route: 048
     Dates: start: 20220614, end: 20220812
  4. PAROXETINE [Suspect]
     Active Substance: PAROXETINE
     Indication: Depression
     Dosage: 1 DF EVERY 1 DAY
     Route: 048
     Dates: start: 20220614, end: 20220812
  5. LOPERAMIDE [Suspect]
     Active Substance: LOPERAMIDE
     Indication: Diarrhoea
     Dosage: 2 MG
     Route: 048
     Dates: start: 20220622, end: 20220629
  6. IBUPROFEN [Suspect]
     Active Substance: IBUPROFEN
     Indication: Pain
     Dosage: UNK
     Route: 048
     Dates: start: 20220801, end: 20220810

REACTIONS (4)
  - Toxic epidermal necrolysis [Recovered/Resolved]
  - Febrile bone marrow aplasia [Recovered/Resolved]
  - Overdose [Unknown]
  - Intentional product use issue [Unknown]

NARRATIVE: CASE EVENT DATE: 20220812
